FAERS Safety Report 5679694-9 (Version None)
Quarter: 2008Q1

REPORT INFORMATION
  Report Type: 
  Country: None (occurrence: None)
  Receive Date: 20080325
  Receipt Date: 20080313
  Transmission Date: 20080703
  Serious: Yes (Hospitalization)
  Sender: FDA-Public Use
  Company Number: DE-GENENTECH-252882

PATIENT
  Sex: Male
  Weight: 104 kg

DRUGS (18)
  1. MABTHERA [Suspect]
     Indication: POLYARTHRITIS
     Dates: start: 20070502
  2. ADALIMUMAB [Concomitant]
     Indication: DRUG USE FOR UNKNOWN INDICATION
     Dates: start: 20060726, end: 20060801
  3. AMARYL [Concomitant]
     Indication: DRUG USE FOR UNKNOWN INDICATION
  4. CALCIUM CARBONATE [Concomitant]
     Indication: DRUG USE FOR UNKNOWN INDICATION
  5. CALCIUM CARBONATE/CHOLECALCIFEROL [Concomitant]
     Indication: DRUG USE FOR UNKNOWN INDICATION
  6. DECORTIN H [Concomitant]
     Indication: DRUG USE FOR UNKNOWN INDICATION
  7. DICLOFENAC SODIUM [Concomitant]
     Indication: DRUG USE FOR UNKNOWN INDICATION
  8. DMARD (RO 31-3948) [Concomitant]
     Indication: DRUG USE FOR UNKNOWN INDICATION
  9. ENBREL [Concomitant]
     Indication: DRUG USE FOR UNKNOWN INDICATION
     Dosage: UNK, UNK
     Dates: start: 20061201, end: 20070401
  10. FOLIC ACID [Concomitant]
     Indication: DRUG USE FOR UNKNOWN INDICATION
  11. GODAMED [Concomitant]
     Indication: DRUG USE FOR UNKNOWN INDICATION
  12. LEFLUNOMIDE [Concomitant]
     Indication: DRUG USE FOR UNKNOWN INDICATION
     Dosage: UNK, UNK
     Dates: start: 20060401, end: 20070401
  13. LYRICA [Concomitant]
     Indication: DRUG USE FOR UNKNOWN INDICATION
  14. METHOTREXATE [Concomitant]
     Indication: POLYARTHRITIS
     Dosage: UNK, UNK
     Dates: start: 20050101
  15. METHOTREXATE [Concomitant]
     Dosage: UNK, UNK
     Dates: start: 20060420
  16. PANTOZOL [Concomitant]
     Indication: DRUG USE FOR UNKNOWN INDICATION
  17. RAMIPRIL [Concomitant]
     Indication: DRUG USE FOR UNKNOWN INDICATION
  18. VENLAFAXINE HYDROCHLORIDE [Concomitant]
     Indication: DRUG USE FOR UNKNOWN INDICATION

REACTIONS (9)
  - ARTHRALGIA [None]
  - CHILLS [None]
  - ECZEMA [None]
  - ERYTHEMA [None]
  - HAEMATURIA [None]
  - INFLAMMATION [None]
  - PAIN IN EXTREMITY [None]
  - PAIN OF SKIN [None]
  - WHITE BLOOD CELL COUNT ABNORMAL [None]
